FAERS Safety Report 4689294-5 (Version None)
Quarter: 2005Q2

REPORT INFORMATION
  Report Type: 
  Country: None (occurrence: None)
  Receive Date: 20050613
  Receipt Date: 20050314
  Transmission Date: 20051028
  Serious: Yes (Hospitalization)
  Sender: FDA-Public Use
  Company Number: US-MERCK-0503USA02895

PATIENT
  Age: 55 Year
  Sex: Female
  Weight: 100 kg

DRUGS (3)
  1. VIOXX [Suspect]
     Indication: SPINAL COLUMN STENOSIS
     Route: 048
     Dates: start: 20030101, end: 20040924
  2. VIOXX [Suspect]
     Indication: SURGERY
     Route: 048
     Dates: start: 20030101, end: 20040924
  3. DETROL LA [Concomitant]
     Indication: MICTURITION URGENCY
     Route: 065

REACTIONS (16)
  - ACUTE MYOCARDIAL INFARCTION [None]
  - ARRHYTHMIA [None]
  - ASTHENIA [None]
  - CHEST PAIN [None]
  - CORONARY ARTERY DISEASE [None]
  - CORONARY ARTERY OCCLUSION [None]
  - CORONARY ARTERY STENOSIS [None]
  - ELECTROCARDIOGRAM Q WAVES [None]
  - EMOTIONAL DISTRESS [None]
  - FATIGUE [None]
  - HEART RATE IRREGULAR [None]
  - MENTAL DISORDER [None]
  - MYOCARDIAL INFARCTION [None]
  - PAIN IN JAW [None]
  - STRESS AT WORK [None]
  - VENTRICULAR HYPOKINESIA [None]
